FAERS Safety Report 22084649 (Version 4)
Quarter: 2023Q2

REPORT INFORMATION
  Report Type: Spontaneous
  Country: CA (occurrence: CA)
  Receive Date: 20230310
  Receipt Date: 20230503
  Transmission Date: 20230721
  Serious: No
  Sender: FDA-Public Use
  Company Number: CA-PFIZER INC-202201318514

PATIENT
  Age: 12 Year
  Sex: Male
  Weight: 55 kg

DRUGS (7)
  1. ABRILADA [Suspect]
     Active Substance: ADALIMUMAB-AFZB
     Indication: Crohn^s disease
     Dosage: 1 DF (160 MG FIRST DOSE AND 80 MG WEEK 2 AND THEN 40 MG MAINTENANCE EVERY 2 WEEKS)
     Route: 058
     Dates: start: 20221119, end: 20221119
  2. ABRILADA [Suspect]
     Active Substance: ADALIMUMAB-AFZB
     Dosage: 1 DF (160 MG AT WEEK 0, 80 MG AT WEEK 2, AND THEN 40 MG Q 2 WEEKS)
     Route: 058
     Dates: start: 20221208
  3. ABRILADA [Suspect]
     Active Substance: ADALIMUMAB-AFZB
     Dosage: 80 MG (160 MG AT WEEK 0, 80 MG AT WEEK 2, AND THEN 40 MG Q 2 WEEKS)
     Route: 058
     Dates: start: 20221223
  4. ABRILADA [Suspect]
     Active Substance: ADALIMUMAB-AFZB
     Dosage: 1 DF (160 MG AT WEEK 0, 80 MG AT WEEK 2, AND THEN 40 MG Q 2 WEEKS)
     Route: 058
     Dates: start: 20230107
  5. ABRILADA [Suspect]
     Active Substance: ADALIMUMAB-AFZB
     Dosage: 1 DF (160 MG AT WEEK 0, 80 MG AT WEEK 2, AND THEN 40 MG Q 2 WEEKS)
     Route: 058
     Dates: start: 20230304
  6. ABRILADA [Suspect]
     Active Substance: ADALIMUMAB-AFZB
     Dosage: 40 MG, UNKNOWN
     Route: 058
     Dates: start: 20230310
  7. BENADRYL [Concomitant]
     Active Substance: DIPHENHYDRAMINE HYDROCHLORIDE
     Indication: Premedication
     Dosage: UNK
     Dates: start: 20230107, end: 20230107

REACTIONS (14)
  - Off label use [Unknown]
  - Device difficult to use [Unknown]
  - Device defective [Unknown]
  - Product dose omission in error [Unknown]
  - Wrong technique in device usage process [Unknown]
  - Nausea [Recovering/Resolving]
  - Ear infection [Recovered/Resolved]
  - Injection site pruritus [Unknown]
  - Injection site swelling [Unknown]
  - Oropharyngeal pain [Recovered/Resolved]
  - Insomnia [Not Recovered/Not Resolved]
  - Asthenia [Unknown]
  - Exposure via skin contact [Unknown]
  - Accidental exposure to product [Unknown]

NARRATIVE: CASE EVENT DATE: 20220101
